FAERS Safety Report 4694307-0 (Version None)
Quarter: 2005Q2

REPORT INFORMATION
  Report Type: 
  Country: None (occurrence: None)
  Receive Date: 20050620
  Receipt Date: 20050609
  Transmission Date: 20051028
  Serious: Yes (Other)
  Sender: FDA-Public Use
  Company Number: US-JNJFOC-20050602526

PATIENT
  Age: 36 Year

DRUGS (5)
  1. INFLIXIMAB [Suspect]
     Indication: CROHN'S DISEASE
     Dosage: AT 0,2 AND 6 WEEKS FOR 3 INFUSIONS
     Route: 042
  2. PREDNISONE TAB [Concomitant]
     Indication: CROHN'S DISEASE
  3. HYDROCORTISONE [Concomitant]
     Indication: PREMEDICATION
     Dosage: 0,2 AND 6 WEEKS 30 MINUTES PRIOR TO EACH INFLIXIMAB INFUSION
     Route: 042
  4. DIPHENHYDRAMINE HCL [Concomitant]
     Indication: PREMEDICATION
     Dosage: 0,2 AND 6 WEEKS 30 MINUTES PRIOR TO EACH INFLIXIMAB INFUSION
     Route: 049
  5. ACETOMINOPHINE [Concomitant]
     Indication: PREMEDICATION
     Dosage: 0,2 AND 6 WEEKS 30 MINUTES PRIOR TO EACH INFLIXIMAB INFUSION
     Route: 049

REACTIONS (5)
  - FATTY ACID DEFICIENCY [None]
  - HAEMORRHAGIC OVARIAN CYST [None]
  - IMMUNE SYSTEM DISORDER [None]
  - PREMATURE MENOPAUSE [None]
  - VASCULITIS [None]
